FAERS Safety Report 19120296 (Version 1)
Quarter: 2021Q2

REPORT INFORMATION
  Report Type: Spontaneous
  Country: BR (occurrence: BR)
  Receive Date: 20210412
  Receipt Date: 20210412
  Transmission Date: 20210717
  Serious: Yes (Hospitalization, Other)
  Sender: FDA-Public Use
  Company Number: BR-ROCHE-2803447

PATIENT
  Age: 38 Year
  Sex: Female

DRUGS (9)
  1. IBRANCE [Suspect]
     Active Substance: PALBOCICLIB
     Indication: BREAST CANCER METASTATIC
     Route: 048
     Dates: end: 202010
  2. TAXOL [Concomitant]
     Active Substance: PACLITAXEL
  3. XELODA [Suspect]
     Active Substance: CAPECITABINE
     Indication: BREAST CANCER
     Route: 065
  4. BEVACIZUMAB. [Suspect]
     Active Substance: BEVACIZUMAB
     Indication: BREAST CANCER
     Route: 065
  5. ERIBULINA [Concomitant]
  6. ABEMACICLIB [Suspect]
     Active Substance: ABEMACICLIB
     Indication: PRODUCT USED FOR UNKNOWN INDICATION
     Route: 065
  7. FEMARA [Concomitant]
     Active Substance: LETROZOLE
  8. ZOLADEX [Concomitant]
     Active Substance: GOSERELIN ACETATE
  9. FASLODEX [Concomitant]
     Active Substance: FULVESTRANT

REACTIONS (6)
  - COVID-19 [Recovered/Resolved]
  - Osteonecrosis of jaw [Unknown]
  - Bradycardia [Not Recovered/Not Resolved]
  - Diarrhoea [Unknown]
  - Back pain [Unknown]
  - Gait disturbance [Recovered/Resolved]

NARRATIVE: CASE EVENT DATE: 2020
